FAERS Safety Report 19498110 (Version 1)
Quarter: 2021Q3

REPORT INFORMATION
  Report Type: Spontaneous
  Country: DE (occurrence: DE)
  Receive Date: 20210706
  Receipt Date: 20210706
  Transmission Date: 20211014
  Serious: Yes (Hospitalization)
  Sender: FDA-Public Use
  Company Number: DE-TEVA-2021-DE-1929868

PATIENT
  Age: 33 Year
  Sex: Female
  Weight: 50 kg

DRUGS (12)
  1. IRINOTECAN [Suspect]
     Active Substance: IRINOTECAN
     Dosage: ACCORDING TO THE SCHEME
     Route: 042
  2. NALOXEGOL [Concomitant]
     Active Substance: NALOXEGOL
     Dosage: 25 MILLIGRAM DAILY; 1?0?0?0
     Route: 048
  3. ADDEL TRACE [Concomitant]
     Active Substance: ELECTROLYTES NOS\MINERALS
     Dosage: ACCORDING TO THE SCHEME
     Route: 042
  4. LEVOMEPROMAZIN [Concomitant]
     Active Substance: LEVOMEPROMAZINE
     Dosage: 40 MG, REQUIREMENT, DROPS
     Route: 048
  5. FLUOROURACIL. [Suspect]
     Active Substance: FLUOROURACIL
     Dosage: ACCORDING TO THE SCHEME
     Route: 042
  6. METAMIZOL [Concomitant]
     Active Substance: METAMIZOLE SODIUM
     Dosage: 500 MG, REQUIREMENT, DROPS
     Route: 048
  7. FOLINSAEURE [Concomitant]
     Active Substance: LEUCOVORIN
     Dosage: ACCORDING TO THE SCHEME
     Route: 042
  8. RINGER?ACETAT?LOSUNG BERNBURG GLAS 500ML [Concomitant]
     Dosage: 1 DOSAGE FORMS DAILY; 1?0?0?0
     Route: 042
  9. BUPRENORPHIN [Concomitant]
     Active Substance: BUPRENORPHINE
     Dosage: 0.2 MG, AS NEEDED
     Route: 060
  10. DEXAMETHASON [Concomitant]
     Active Substance: DEXAMETHASONE
     Dosage: 8 MILLIGRAM DAILY;  1?0?0?0
     Route: 048
  11. OLIMEL PERI 2,5% E DREIKAMMER?KUNSTSTOFFBEUTEL 1,5L [Concomitant]
     Dosage: ACCORDING TO THE SCHEME
     Route: 042
  12. CLINIMIX 5% G?E ZWEI?KAMMER?BEUTEL 1L [Concomitant]
     Dosage: 1 DOSAGE FORMS DAILY; 1?0?0?0
     Route: 042

REACTIONS (2)
  - Diarrhoea [Unknown]
  - Abdominal pain [Unknown]
